FAERS Safety Report 5377747-6 (Version None)
Quarter: 2007Q2

REPORT INFORMATION
  Report Type: 
  Country: None (occurrence: None)
  Receive Date: 20070629
  Receipt Date: 20070618
  Transmission Date: 20071010
  Serious: No
  Sender: FDA-Public Use
  Company Number: 157689ISR

PATIENT
  Age: 25 Year
  Sex: Male

DRUGS (1)
  1. CIPROFLOXACIN [Suspect]
     Indication: EYE INFECTION
     Dosage: 1500 MG (750 MG, 2 IN 1 D), ORAL
     Route: 048

REACTIONS (5)
  - CONDITION AGGRAVATED [None]
  - EYE EXCISION [None]
  - HYPOPYON [None]
  - KERATITIS [None]
  - THERAPEUTIC RESPONSE DECREASED [None]
